FAERS Safety Report 5851094-8 (Version None)
Quarter: 2008Q3

REPORT INFORMATION
  Report Type: 
  Country: None (occurrence: None)
  Receive Date: 20080820
  Receipt Date: 20080808
  Transmission Date: 20090109
  Serious: Yes (Hospitalization)
  Sender: FDA-Public Use
  Company Number: A0644519B

PATIENT
  Age: 33 Year
  Sex: Female

DRUGS (5)
  1. PAXIL [Suspect]
     Indication: DEPRESSION
     Dosage: 30MG PER DAY
     Route: 048
     Dates: start: 20010801, end: 20020301
  2. ZOLOFT [Concomitant]
     Indication: ANXIETY
     Dosage: 10MG PER DAY
     Dates: start: 20010801, end: 20011001
  3. TOPROL-XL [Concomitant]
     Dates: start: 20010801, end: 20020401
  4. VITAMIN AND MINERAL PRENATAL SUPPLEMENT W/ FOLIC ACID CAP [Concomitant]
     Indication: PREGNANCY
  5. IRON PILLS [Concomitant]
     Dates: start: 20010801

REACTIONS (3)
  - DRUG EXPOSURE DURING PREGNANCY [None]
  - PREMATURE LABOUR [None]
  - PREMATURE SEPARATION OF PLACENTA [None]
